FAERS Safety Report 18125792 (Version 1)
Quarter: 2020Q3

REPORT INFORMATION
  Report Type: Other
  Country: FR (occurrence: FR)
  Receive Date: 20200807
  Receipt Date: 20200807
  Transmission Date: 20201103
  Serious: Yes (Hospitalization)
  Sender: FDA-Public Use
  Company Number: FR-ALSI-202000288

PATIENT
  Sex: Female

DRUGS (1)
  1. NITROUS OXIDE. [Suspect]
     Active Substance: NITROUS OXIDE
     Indication: SUBSTANCE USE
     Route: 055

REACTIONS (5)
  - Substance use [Unknown]
  - Gastrointestinal pain [Unknown]
  - Gait disturbance [Unknown]
  - Nausea [Unknown]
  - Myalgia [Unknown]
